FAERS Safety Report 7609888-4 (Version None)
Quarter: 2011Q3

REPORT INFORMATION
  Report Type: 
  Country: None (occurrence: None)
  Receive Date: 20110714
  Receipt Date: 20110708
  Transmission Date: 20111222
  Serious: Yes (Other)
  Sender: FDA-Public Use
  Company Number: US-BAXTER-2011BH022190

PATIENT
  Age: 73 Year
  Sex: Female

DRUGS (2)
  1. MITOMYCIN [Suspect]
     Indication: ANAL CANCER
     Route: 065
  2. CETUXIMAB [Suspect]
     Indication: ANAL CANCER
     Route: 065

REACTIONS (2)
  - THROMBOTIC THROMBOCYTOPENIC PURPURA [None]
  - HAEMOLYTIC URAEMIC SYNDROME [None]
